FAERS Safety Report 8983971 (Version 1)
Quarter: 2012Q4

REPORT INFORMATION
  Report Type: Spontaneous
  Country: US (occurrence: None)
  Receive Date: 20121218
  Receipt Date: 20121218
  Transmission Date: 20130627
  Serious: No
  Sender: FDA-Public Use
  Company Number: None

PATIENT
  Age: 81 Year
  Sex: Female
  Weight: 62.6 kg

DRUGS (1)
  1. CHOLESTYRAMINE [Suspect]
     Indication: IRRITABLE BOWEL SYNDROME
     Dosage: Nov 27, 1 packet once a day, 4 grams anhydrous
     Route: 048

REACTIONS (2)
  - Nausea [None]
  - Abdominal pain [None]
